FAERS Safety Report 25479328 (Version 1)
Quarter: 2025Q2

REPORT INFORMATION
  Report Type: Spontaneous
  Country: DE (occurrence: DE)
  Receive Date: 20250625
  Receipt Date: 20250625
  Transmission Date: 20250717
  Serious: Yes (Life-Threatening, Hospitalization, Other)
  Sender: BRISTOL-MYERS SQUIBB COMPANY
  Company Number: DE-BRISTOL-MYERS SQUIBB COMPANY-2025-088639

PATIENT
  Age: 78 Year
  Sex: Female

DRUGS (5)
  1. NIVOLUMAB [Suspect]
     Active Substance: NIVOLUMAB
     Indication: Malignant melanoma
     Dates: start: 20240822
  2. NIVOLUMAB [Suspect]
     Active Substance: NIVOLUMAB
     Dates: start: 202504
  3. NIVOLUMAB [Suspect]
     Active Substance: NIVOLUMAB
     Dates: start: 202506
  4. IPILIMUMAB [Suspect]
     Active Substance: IPILIMUMAB
     Indication: Malignant melanoma
     Dates: start: 202504
  5. IPILIMUMAB [Suspect]
     Active Substance: IPILIMUMAB
     Dates: start: 202506

REACTIONS (8)
  - Fatigue [Recovering/Resolving]
  - Dizziness [Recovering/Resolving]
  - Asthenia [Recovering/Resolving]
  - Immune-mediated hepatitis [Unknown]
  - Hepatomegaly [Unknown]
  - Cholecystitis acute [Unknown]
  - Hepatic failure [Unknown]
  - Hypophysitis [Unknown]

NARRATIVE: CASE EVENT DATE: 20250601
